FAERS Safety Report 7515404-8 (Version None)
Quarter: 2011Q2

REPORT INFORMATION
  Report Type: 
  Country: None (occurrence: None)
  Receive Date: 20110601
  Receipt Date: 20100622
  Transmission Date: 20111010
  Serious: No
  Sender: FDA-Public Use
  Company Number: US-PFIZER INC-2010078230

PATIENT
  Sex: Male
  Weight: 84 kg

DRUGS (9)
  1. DILAUDID [Concomitant]
     Indication: PAIN
     Dosage: 4 MG, 6X/DAY
     Route: 048
  2. CYMBALTA [Concomitant]
     Indication: DEPRESSION
     Dosage: 60 MG, DAILY
     Route: 048
  3. KEFLEX [Concomitant]
     Indication: IMMUNE SYSTEM DISORDER
     Dosage: 500 MG, DAILY
     Route: 048
     Dates: start: 20100101
  4. CHANTIX [Suspect]
     Indication: SMOKING CESSATION THERAPY
     Dosage: 0.5 MG, DAILY
     Route: 048
     Dates: start: 20100609
  5. METFORMIN [Concomitant]
     Indication: DIABETES MELLITUS
     Dosage: 1000 MG, 2X/DAY
     Route: 048
  6. ATENOLOL [Concomitant]
     Indication: HYPERTENSION
     Dosage: 25 MG, DAILY
     Route: 048
     Dates: start: 20080101
  7. ZOCOR [Concomitant]
     Indication: BLOOD CHOLESTEROL INCREASED
     Dosage: 20 MG, DAILY AT NIGHT
     Route: 048
  8. GLIPIZIDE [Concomitant]
     Indication: DIABETES MELLITUS
     Dosage: 10 MG, 2X/DAY
     Route: 048
  9. PANCRELIPASE [Concomitant]
     Indication: PANCREATITIS CHRONIC
     Dosage: 12000 UNITS, UNK
     Route: 048

REACTIONS (3)
  - ACNE [None]
  - RASH [None]
  - SKIN LESION [None]
